FAERS Safety Report 10253362 (Version 1)
Quarter: 2014Q2

REPORT INFORMATION
  Report Type: Report from Study
  Country: US (occurrence: US)
  Receive Date: 20140623
  Receipt Date: 20140623
  Transmission Date: 20141212
  Serious: Yes (Other)
  Sender: FDA-Public Use
  Company Number: US-ABBVIE-14P-163-1249078-00

PATIENT
  Sex: Female
  Weight: 65.83 kg

DRUGS (9)
  1. CREON [Suspect]
     Indication: STEATORRHOEA
     Dates: start: 201102
  2. LANTUS [Concomitant]
     Indication: DIABETES MELLITUS
  3. SIMVASTATIN [Concomitant]
     Indication: BLOOD CHOLESTEROL INCREASED
  4. LOSARTAN/HYDROCHLOROTHIAZIDE [Concomitant]
     Indication: HYPERTENSION
  5. ASPIRIN [Concomitant]
     Indication: CARDIOVASCULAR EVENT PROPHYLAXIS
  6. MULTIVITAMINS, OTHER COMBINATIONS [Concomitant]
     Indication: VITAMIN SUPPLEMENTATION
  7. PHILIPS COLON HEALTH [Concomitant]
     Indication: GASTROINTESTINAL DISORDER
  8. COMBIVENT [Concomitant]
     Indication: CHRONIC OBSTRUCTIVE PULMONARY DISEASE
  9. VITAMIN D [Concomitant]
     Indication: VITAMIN SUPPLEMENTATION

REACTIONS (5)
  - Medical device site reaction [Recovered/Resolved]
  - Pelvic pain [Recovering/Resolving]
  - Urinary tract obstruction [Recovered/Resolved]
  - Calculus urinary [Not Recovered/Not Resolved]
  - Vaginal haemorrhage [Recovered/Resolved]
